FAERS Safety Report 6751927-7 (Version None)
Quarter: 2010Q2

REPORT INFORMATION
  Report Type: 
  Country: None (occurrence: None)
  Receive Date: 20100602
  Receipt Date: 20100524
  Transmission Date: 20101027
  Serious: Yes (Other)
  Sender: FDA-Public Use
  Company Number: US-PFIZER INC-2008076699

PATIENT
  Sex: Female
  Weight: 61.224 kg

DRUGS (7)
  1. GEODON [Suspect]
     Indication: AFFECTIVE DISORDER
     Dosage: 160 MG, 1X/DAY
     Route: 048
     Dates: start: 20080901, end: 20080928
  2. GEODON [Interacting]
     Indication: BIPOLAR DISORDER
     Dosage: 160 MG, DAILY
     Route: 048
     Dates: start: 20100301
  3. GEODON [Interacting]
     Indication: MANIA
  4. LAMICTAL [Interacting]
     Dosage: UNK
  5. SYNTHROID [Concomitant]
     Indication: THYROID DISORDER
     Dosage: UNK
  6. LITHIUM [Concomitant]
     Dosage: UNK
  7. LEXAPRO [Concomitant]
     Dosage: UNK

REACTIONS (14)
  - ASTHENIA [None]
  - CONTUSION [None]
  - DRUG INEFFECTIVE [None]
  - DRUG INTERACTION [None]
  - ENERGY INCREASED [None]
  - HALLUCINATION [None]
  - INSOMNIA [None]
  - LETHARGY [None]
  - LOSS OF CONSCIOUSNESS [None]
  - NIGHTMARE [None]
  - OVERDOSE [None]
  - SEDATION [None]
  - SOMNOLENCE [None]
  - WHITE BLOOD CELL COUNT DECREASED [None]
